FAERS Safety Report 16971067 (Version 1)
Quarter: 2019Q4

REPORT INFORMATION
  Report Type: Spontaneous
  Country: BG (occurrence: BG)
  Receive Date: 20191029
  Receipt Date: 20191029
  Transmission Date: 20200122
  Serious: Yes (Other)
  Sender: FDA-Public Use
  Company Number: BG-GLAXOSMITHKLINE-BG2019EME192333

PATIENT

DRUGS (1)
  1. TRELEGY ELLIPTA [Suspect]
     Active Substance: FLUTICASONE FUROATE\UMECLIDINIUM BROMIDE\VILANTEROL TRIFENATATE
     Indication: CHRONIC OBSTRUCTIVE PULMONARY DISEASE
     Dosage: 1 DF, QD (ONE INHALATION A DAY) (DAILY DOSE: 92/55/22 UG)
     Route: 048
     Dates: start: 201909

REACTIONS (3)
  - Urinary retention [Recovered/Resolved]
  - Benign prostatic hyperplasia [Unknown]
  - Cor pulmonale [Unknown]
